FAERS Safety Report 6566369-7 (Version None)
Quarter: 2010Q1

REPORT INFORMATION
  Report Type: 
  Country: None (occurrence: None)
  Receive Date: 20100202
  Receipt Date: 20100121
  Transmission Date: 20100710
  Serious: Yes (Hospitalization, Other)
  Sender: FDA-Public Use
  Company Number: US-ELI_LILLY_AND_COMPANY-US201001004840

PATIENT
  Sex: Female

DRUGS (5)
  1. FORTEO [Suspect]
     Indication: OSTEOPOROSIS
     Dosage: 20 UG, DAILY (1/D)
     Dates: start: 20091001, end: 20091101
  2. FEBUXOSTAT [Concomitant]
     Indication: ARTHRITIS
  3. ZOCOR [Concomitant]
     Indication: BLOOD CHOLESTEROL
  4. NEPHROVITE [Concomitant]
  5. PREDNISONE [Concomitant]
     Dosage: 3 MG, DAILY (1/D)

REACTIONS (5)
  - FALL [None]
  - HUMERUS FRACTURE [None]
  - LOSS OF CONTROL OF LEGS [None]
  - PAIN [None]
  - UPPER LIMB FRACTURE [None]
